FAERS Safety Report 7111043-1 (Version None)
Quarter: 2010Q4

REPORT INFORMATION
  Report Type: 
  Country: None (occurrence: None)
  Receive Date: 20101118
  Receipt Date: 20101105
  Transmission Date: 20110411
  Serious: Yes (Other)
  Sender: FDA-Public Use
  Company Number: US-PFIZER INC-2010106274

PATIENT
  Age: 73 Year
  Sex: Female
  Weight: 89.357 kg

DRUGS (5)
  1. NEURONTIN [Suspect]
     Indication: SCIATICA
     Dosage: 100 MG, 3X/DAY
     Route: 048
  2. VENLAFAXINE HCL EXTENDED-RELEASE [Concomitant]
     Dosage: 37.5
     Route: 048
  3. METOPROLOL SUCCINATE [Concomitant]
     Dosage: 100 MG, 1X/DAY
     Route: 048
  4. SERTRALINE [Concomitant]
     Dosage: 100 MG, 1X/DAY
     Route: 048
  5. GEMFIBROZIL [Concomitant]
     Dosage: 600 MG, 2X/DAY
     Route: 048

REACTIONS (4)
  - ANXIETY [None]
  - ILL-DEFINED DISORDER [None]
  - MENTAL IMPAIRMENT [None]
  - NAUSEA [None]
